FAERS Safety Report 8229055-3 (Version None)
Quarter: 2012Q1

REPORT INFORMATION
  Report Type: 
  Country: None (occurrence: None)
  Receive Date: 20120322
  Receipt Date: 20120308
  Transmission Date: 20120608
  Serious: Yes (Hospitalization)
  Sender: FDA-Public Use
  Company Number: KH-ROCHE-1037486

PATIENT
  Age: 19 Year
  Sex: Male
  Weight: 51 kg

DRUGS (7)
  1. B12 COMPLEX [Concomitant]
     Dates: start: 20081215, end: 20081220
  2. CEFTRIAXONE [Suspect]
     Dates: start: 20081203, end: 20081204
  3. TAMIFLU [Suspect]
     Indication: PRODUCT USED FOR UNKNOWN INDICATION
     Dates: start: 20081211, end: 20081218
  4. DEXTROSE [Concomitant]
     Dates: start: 20081203, end: 20081204
  5. CEFTRIAXONE [Suspect]
     Indication: PRODUCT USED FOR UNKNOWN INDICATION
     Dates: start: 20081203, end: 20081204
  6. MULTI-VITAMIN [Concomitant]
     Dates: start: 20081217, end: 20081220
  7. MULTI-VITAMIN [Concomitant]
     Dates: start: 20081203, end: 20081209

REACTIONS (4)
  - ALANINE AMINOTRANSFERASE ABNORMAL [None]
  - INFLUENZA [None]
  - PNEUMONIA [None]
  - ASPARTATE AMINOTRANSFERASE ABNORMAL [None]
